FAERS Safety Report 22845719 (Version 5)
Quarter: 2024Q1

REPORT INFORMATION
  Report Type: Report from Study
  Country: US (occurrence: US)
  Receive Date: 20230821
  Receipt Date: 20240324
  Transmission Date: 20240410
  Serious: Yes (Other)
  Sender: FDA-Public Use
  Company Number: US-ABBVIE-4272005

PATIENT
  Age: 63 Year
  Sex: Female

DRUGS (18)
  1. RINVOQ [Suspect]
     Active Substance: UPADACITINIB
     Indication: Psoriatic arthropathy
     Dosage: FORM STRENGTH: 15 MILLIGRAM
     Route: 048
     Dates: start: 20220612, end: 202308
  2. RINVOQ [Suspect]
     Active Substance: UPADACITINIB
     Indication: Psoriatic arthropathy
     Dosage: FORM STRENGTH: 15 MILLIGRAM, DRUG END DATE-2022
     Route: 048
     Dates: start: 20220330
  3. RINVOQ [Suspect]
     Active Substance: UPADACITINIB
     Indication: Psoriatic arthropathy
     Dosage: FORM STRENGTH: 15 MILLIGRAM?DOSE UNCHANGED
     Route: 048
     Dates: start: 202308
  4. RINVOQ [Suspect]
     Active Substance: UPADACITINIB
     Indication: Psoriatic arthropathy
     Route: 048
  5. TRAZODONE [Concomitant]
     Active Substance: TRAZODONE HYDROCHLORIDE
     Indication: Sleep disorder
     Route: 065
  6. ATORVASTATIN [Concomitant]
     Active Substance: ATORVASTATIN
     Indication: Blood cholesterol increased
     Dosage: 80 MILLIGRAM
     Route: 065
  7. ALBUTEROL [Concomitant]
     Active Substance: ALBUTEROL
     Indication: Product used for unknown indication
     Dosage: INHALER?FOUR TIMES A DAY AS NEEDED
     Route: 065
  8. GARLIC [Concomitant]
     Active Substance: GARLIC
     Indication: Product used for unknown indication
     Dosage: 2 PILLS A DAY
     Route: 065
  9. EZETIMIBE [Concomitant]
     Active Substance: EZETIMIBE
     Indication: Blood cholesterol increased
     Route: 065
  10. DULOXETINE [Concomitant]
     Active Substance: DULOXETINE
     Indication: Antiinflammatory therapy
  11. BACLOFEN [Concomitant]
     Active Substance: BACLOFEN
     Indication: Muscle spasms
     Dosage: TIME INTERVAL: 0.33333333 DAYS
     Route: 065
  12. GABAPENTIN [Concomitant]
     Active Substance: GABAPENTIN
     Indication: Product used for unknown indication
     Dosage: TIME INTERVAL: 0.33333333 DAYS
     Route: 065
  13. FOLIC ACID [Concomitant]
     Active Substance: FOLIC ACID
     Indication: Product used for unknown indication
     Route: 065
  14. FLUTICASONE [Concomitant]
     Active Substance: FLUTICASONE
     Indication: Product used for unknown indication
     Route: 065
  15. BUPROPION [Concomitant]
     Active Substance: BUPROPION
     Indication: Product used for unknown indication
     Route: 065
  16. FISH OIL [Concomitant]
     Active Substance: FISH OIL
     Indication: Product used for unknown indication
  17. LEFLUNOMIDE [Concomitant]
     Active Substance: LEFLUNOMIDE
     Indication: Product used for unknown indication
     Route: 065
  18. METOPROLOL [Concomitant]
     Active Substance: METOPROLOL
     Indication: Product used for unknown indication
     Route: 065

REACTIONS (16)
  - Arthralgia [Not Recovered/Not Resolved]
  - Eye pain [Not Recovered/Not Resolved]
  - Pain [Not Recovered/Not Resolved]
  - Herpes zoster [Recovered/Resolved]
  - Urinary incontinence [Unknown]
  - Back pain [Not Recovered/Not Resolved]
  - Pain in extremity [Not Recovered/Not Resolved]
  - Migraine [Not Recovered/Not Resolved]
  - Visual impairment [Not Recovered/Not Resolved]
  - Surgical failure [Unknown]
  - Peripheral swelling [Recovering/Resolving]
  - Unevaluable event [Unknown]
  - Neck pain [Not Recovered/Not Resolved]
  - Hypoacusis [Not Recovered/Not Resolved]
  - Intervertebral disc protrusion [Unknown]
  - Arthralgia [Unknown]

NARRATIVE: CASE EVENT DATE: 20220401
